FAERS Safety Report 9860925 (Version 1)
Quarter: 2014Q1

REPORT INFORMATION
  Report Type: Spontaneous
  Country: CH (occurrence: CH)
  Receive Date: 20140202
  Receipt Date: 20140202
  Transmission Date: 20141002
  Serious: No
  Sender: FDA-Public Use
  Company Number: CH-ALLERGAN-1302529US

PATIENT
  Age: 60 Year
  Sex: Female
  Weight: 70 kg

DRUGS (1)
  1. BOTOX LYOPHILISAT [Suspect]
     Indication: DEPRESSION
     Dosage: 18 UNITS, SINGLE
     Dates: start: 20130207, end: 20130207

REACTIONS (3)
  - Off label use [Unknown]
  - Eyelid ptosis [Unknown]
  - Eyelid oedema [Unknown]
